FAERS Safety Report 26110504 (Version 1)
Quarter: 2025Q4

REPORT INFORMATION
  Report Type: Spontaneous
  Country: US (occurrence: US)
  Receive Date: 20251202
  Receipt Date: 20251202
  Transmission Date: 20260117
  Serious: No
  Sender: IDORSIA PHARMACEUTICALS
  Company Number: US-IDORSIA-012548-2025-US

PATIENT
  Sex: Female

DRUGS (2)
  1. QUVIVIQ [Suspect]
     Active Substance: DARIDOREXANT
     Indication: Insomnia
     Dosage: 1/4 TABLET OF 25 MG
     Route: 048
  2. KLONOPIN [Concomitant]
     Active Substance: CLONAZEPAM
     Dosage: TITRATING OFF

REACTIONS (7)
  - Hangover [Unknown]
  - Therapeutic product effect variable [Unknown]
  - Dry mouth [Unknown]
  - Dry eye [Unknown]
  - Headache [Unknown]
  - Wrong technique in product usage process [Unknown]
  - Prescribed underdose [Unknown]
